FAERS Safety Report 5340664-1 (Version None)
Quarter: 2007Q2

REPORT INFORMATION
  Report Type: 
  Country: None (occurrence: None)
  Receive Date: 20070405
  Receipt Date: 20070108
  Transmission Date: 20071010
  Serious: No
  Sender: FDA-Public Use
  Company Number: US200612002347

PATIENT
  Age: 40 Year
  Sex: Male
  Weight: 53.5 kg

DRUGS (6)
  1. CYMBALTA [Suspect]
     Indication: DEPRESSION
     Dosage: SEE IMAGE
     Dates: end: 20061107
  2. CYMBALTA [Suspect]
     Indication: DEPRESSION
     Dosage: SEE IMAGE
     Dates: start: 20061108
  3. FENTANYL [Concomitant]
  4. BACLOFEN [Concomitant]
  5. ALPRAZOLAM [Concomitant]
  6. LEXAPRO /USA/ (ESCITALOPRAM) [Concomitant]

REACTIONS (4)
  - DEPRESSION [None]
  - DYSKINESIA [None]
  - PARAESTHESIA [None]
  - SOMNOLENCE [None]
